FAERS Safety Report 5683291-9 (Version None)
Quarter: 2008Q1

REPORT INFORMATION
  Report Type: 
  Country: None (occurrence: None)
  Receive Date: 20080327
  Receipt Date: 20080320
  Transmission Date: 20080703
  Serious: Yes (Life-Threatening, Hospitalization, Other)
  Sender: FDA-Public Use
  Company Number: DE-ABBOTT-07P-062-0425663-00

PATIENT
  Sex: Female
  Weight: 60 kg

DRUGS (3)
  1. HUMIRA [Suspect]
     Indication: RHEUMATOID ARTHRITIS
     Route: 058
     Dates: start: 20070912
  2. ENALAPRIL MALEATE [Concomitant]
     Indication: DRUG USE FOR UNKNOWN INDICATION
  3. ACETYLSALICYLIC ACID SRT [Concomitant]
     Indication: DRUG USE FOR UNKNOWN INDICATION

REACTIONS (8)
  - ANAPHYLACTIC SHOCK [None]
  - CEREBROVASCULAR ACCIDENT [None]
  - CORNEAL DISORDER [None]
  - MIGRAINE [None]
  - NUCLEAR MAGNETIC RESONANCE IMAGING [None]
  - OCULAR HYPERAEMIA [None]
  - RETINAL DETACHMENT [None]
  - VITREOUS HAEMORRHAGE [None]
